FAERS Safety Report 14436858 (Version 1)
Quarter: 2018Q1

REPORT INFORMATION
  Report Type: Spontaneous
  Country: US (occurrence: US)
  Receive Date: 20180125
  Receipt Date: 20180125
  Transmission Date: 20180509
  Serious: Yes (Other)
  Sender: FDA-Public Use
  Company Number: US-LUPIN PHARMACEUTICALS INC.-2017-07922

PATIENT
  Age: 46 Year
  Sex: Male

DRUGS (2)
  1. OXYCODONE [Suspect]
     Active Substance: OXYCODONE
     Indication: PAIN
     Dosage: UNK
     Route: 048
  2. HYDROMORPHONE [Suspect]
     Active Substance: HYDROMORPHONE
     Indication: PAIN
     Dosage: PATIENT-CONTROLLED ANALGESIA
     Route: 065

REACTIONS (5)
  - Mental status changes [Unknown]
  - Drug ineffective [Unknown]
  - Somnolence [Unknown]
  - Pulmonary function challenge test abnormal [Unknown]
  - Hypopnoea [Unknown]
